FAERS Safety Report 7829352-7 (Version None)
Quarter: 2011Q4

REPORT INFORMATION
  Report Type: 
  Country: None (occurrence: None)
  Receive Date: 20111020
  Receipt Date: 20111017
  Transmission Date: 20120403
  Serious: Yes (Hospitalization, Congenital Anomaly, Other)
  Sender: FDA-Public Use
  Company Number: US-PFIZER INC-2011077244

PATIENT
  Sex: Male
  Weight: 4 kg

DRUGS (11)
  1. ESTRADIOL [Concomitant]
     Dosage: 3 MG, 2X/DAY
     Route: 064
     Dates: start: 20100527
  2. MULTI-VITAMINS [Concomitant]
     Dosage: 1 TABLET DAILY
     Route: 064
     Dates: start: 20100706
  3. PROGESTERONE [Concomitant]
     Dosage: 8 %, 1X/DAY
     Route: 064
     Dates: start: 20100601
  4. ZOFRAN [Concomitant]
     Dosage: 8 MG, 3X/DAY
     Route: 064
     Dates: start: 20100706
  5. ZOLOFT [Suspect]
     Indication: OBSESSIVE-COMPULSIVE DISORDER
  6. CLOMID [Concomitant]
     Dosage: 50 MG, 2X/DAY
     Route: 064
     Dates: start: 20100524
  7. ACETAMINOPHEN AND HYDROCODONE BITARTRATE [Concomitant]
     Dosage: 5-500 MG
     Route: 064
     Dates: start: 20100612
  8. ZOLOFT [Suspect]
     Indication: DEPRESSION
     Dosage: 100 MG, 1X/DAY
     Route: 064
     Dates: start: 20080708
  9. DEPO-PROVERA [Concomitant]
     Dosage: 150 MG/ML, EVERY THREE MONTHS
     Route: 064
     Dates: start: 20100524
  10. DOCOSAHEXANOIC ACID [Concomitant]
     Dosage: UNK
     Route: 064
     Dates: start: 20100706
  11. ZOLOFT [Suspect]
     Indication: ANXIETY

REACTIONS (13)
  - MATERNAL EXPOSURE DURING PREGNANCY [None]
  - RESPIRATORY DISTRESS [None]
  - CONGENITAL PNEUMONIA [None]
  - HYPOXIA [None]
  - WEIGHT DECREASED [None]
  - VENTRICULAR SEPTAL DEFECT [None]
  - POSITIONAL PLAGIOCEPHALY [None]
  - MUSCLE DISORDER [None]
  - TALIPES [None]
  - RIGHT VENTRICLE OUTFLOW TRACT OBSTRUCTION [None]
  - UMBILICAL HERNIA [None]
  - VOMITING [None]
  - TRANSIENT TACHYPNOEA OF THE NEWBORN [None]
